FAERS Safety Report 7892450-6 (Version None)
Quarter: 2011Q4

REPORT INFORMATION
  Report Type: 
  Country: None (occurrence: None)
  Receive Date: 20111104
  Receipt Date: 20111026
  Transmission Date: 20120403
  Serious: Yes (Hospitalization)
  Sender: FDA-Public Use
  Company Number: US-US-EMD SERONO, INC.-7090317

PATIENT
  Sex: Female
  Weight: 49 kg

DRUGS (6)
  1. REBIF [Suspect]
     Indication: MULTIPLE SCLEROSIS
     Route: 058
     Dates: start: 20050204
  2. REBIF [Suspect]
     Route: 058
     Dates: start: 20110801
  3. REBIF [Suspect]
     Route: 058
     Dates: start: 20060101, end: 20100101
  4. REBIF [Suspect]
     Route: 058
     Dates: start: 20111001
  5. NOVANTRONE [Suspect]
     Indication: MULTIPLE SCLEROSIS
     Dosage: 12 MG/M2
     Dates: start: 20030101
  6. NOVANTRONE [Suspect]
     Dosage: 12 MG/M2
     Dates: start: 20050101

REACTIONS (3)
  - INCISION SITE COMPLICATION [None]
  - PANCREATIC CARCINOMA [None]
  - INJECTION SITE MASS [None]
